APPROVED DRUG PRODUCT: TRIAMTERENE AND HYDROCHLOROTHIAZIDE
Active Ingredient: HYDROCHLOROTHIAZIDE; TRIAMTERENE
Strength: 25MG;37.5MG
Dosage Form/Route: TABLET;ORAL
Application: A208360 | Product #001 | TE Code: AB
Applicant: ZYDUS PHARMACEUTICALS USA INC
Approved: Jun 29, 2018 | RLD: No | RS: No | Type: RX